FAERS Safety Report 4954709-1 (Version None)
Quarter: 2006Q1

REPORT INFORMATION
  Report Type: 
  Country: None (occurrence: None)
  Receive Date: 20060131
  Receipt Date: 20050106
  Transmission Date: 20060701
  Serious: Yes (Hospitalization)
  Sender: FDA-Public Use
  Company Number: 05P-163-0285521-00

PATIENT
  Sex: Female

DRUGS (1)
  1. OMNICEF [Suspect]

REACTIONS (1)
  - RENAL FAILURE ACUTE [None]
